FAERS Safety Report 13551589 (Version 2)
Quarter: 2017Q3

REPORT INFORMATION
  Report Type: Spontaneous
  Country: PL (occurrence: PL)
  Receive Date: 20170516
  Receipt Date: 20170914
  Transmission Date: 20171127
  Serious: Yes (Life-Threatening, Hospitalization)
  Sender: FDA-Public Use
  Company Number: PL-TEVA-767545ISR

PATIENT
  Age: 78 Year
  Sex: Female

DRUGS (17)
  1. CLARITHROMYCIN. [Interacting]
     Active Substance: CLARITHROMYCIN
     Indication: UPPER RESPIRATORY TRACT INFECTION
     Dosage: 1000 MILLIGRAM DAILY;
     Route: 048
  2. PARACETAMOL [Concomitant]
     Active Substance: ACETAMINOPHEN
  3. PERAZINE [Interacting]
     Active Substance: PERAZINE
     Indication: SLEEP DISORDER
  4. CHLORPROTHIXENE [Interacting]
     Active Substance: CHLORPROTHIXENE
     Indication: SLEEP DISORDER
  5. METAMIZOLE [Concomitant]
     Active Substance: METAMIZOLE
  6. PERAZINE [Interacting]
     Active Substance: PERAZINE
     Indication: ABNORMAL BEHAVIOUR
     Dosage: 200 MILLIGRAM DAILY;
  7. QUETIAPINE. [Interacting]
     Active Substance: QUETIAPINE
     Indication: SLEEP DISORDER
     Dosage: 200 MILLIGRAM DAILY;
  8. ACATAR ACTITABS [Interacting]
     Active Substance: PSEUDOEPHEDRINE\TRIPROLIDINE
     Indication: UPPER RESPIRATORY TRACT INFECTION
  9. PARACETAMOL + TRAMADOL [Concomitant]
     Active Substance: ACETAMINOPHEN\TRAMADOL
  10. HYDROXYZINE [Suspect]
     Active Substance: HYDROXYZINE HYDROCHLORIDE
     Indication: SLEEP DISORDER
     Dosage: OCCASIONALLY 50 MG AT NIGHT
  11. QUETIAPINE. [Interacting]
     Active Substance: QUETIAPINE
     Indication: ABNORMAL BEHAVIOUR
  12. IBUPROFEN. [Concomitant]
     Active Substance: IBUPROFEN
  13. CHLORPROTHIXENE [Interacting]
     Active Substance: CHLORPROTHIXENE
     Indication: ABNORMAL BEHAVIOUR
     Dosage: 150 MILLIGRAM DAILY;
  14. POTASSIUM [Concomitant]
     Active Substance: POTASSIUM
  15. XYLOMETAZOLINE [Concomitant]
     Active Substance: XYLOMETAZOLINE
  16. HYDROXYZINE [Interacting]
     Active Substance: HYDROXYZINE HYDROCHLORIDE
     Indication: ABNORMAL BEHAVIOUR
  17. NORMATENS (CLOPAMIDE\DIHYDROERGOCRISTINE\RESERPINE) [Interacting]
     Active Substance: CLOPAMIDE\DIHYDROERGOCRISTINE\RESERPINE

REACTIONS (3)
  - Neuroleptic malignant syndrome [Unknown]
  - Drug interaction [Unknown]
  - Upper respiratory tract infection [None]
